FAERS Safety Report 11866584 (Version 3)
Quarter: 2016Q1

REPORT INFORMATION
  Report Type: Spontaneous
  Country: US (occurrence: US)
  Receive Date: 20151224
  Receipt Date: 20160303
  Transmission Date: 20160526
  Serious: Yes (Hospitalization)
  Sender: FDA-Public Use
  Company Number: US-ASTRAZENECA-2015SF29168

PATIENT
  Age: 68 Year
  Sex: Female
  Weight: 47.6 kg

DRUGS (13)
  1. PEPCID [Concomitant]
     Active Substance: FAMOTIDINE
     Indication: FATIGUE
  2. LIPITOR [Suspect]
     Active Substance: ATORVASTATIN CALCIUM
     Indication: BLOOD CHOLESTEROL INCREASED
     Route: 065
     Dates: start: 2007
  3. AMARYL [Concomitant]
     Active Substance: GLIMEPIRIDE
     Indication: DIABETES MELLITUS
     Dates: start: 2010
  4. AMARYL [Concomitant]
     Active Substance: GLIMEPIRIDE
     Indication: BLOOD GLUCOSE INCREASED
     Dates: start: 2010
  5. LIPITOR [Suspect]
     Active Substance: ATORVASTATIN CALCIUM
     Indication: BLOOD CHOLESTEROL INCREASED
     Dosage: LOWER DOSE
     Route: 065
     Dates: start: 2011
  6. CALTRATE [Concomitant]
     Active Substance: CALCIUM CARBONATE
     Indication: OSTEOPOROSIS
     Dosage: AS PRESCRIBED
     Dates: start: 2014
  7. CRESTOR [Suspect]
     Active Substance: ROSUVASTATIN CALCIUM
     Indication: BLOOD CHOLESTEROL ABNORMAL
     Route: 048
  8. PEPCID [Concomitant]
     Active Substance: FAMOTIDINE
     Indication: OESOPHAGEAL ACHALASIA
  9. COZAAR [Concomitant]
     Active Substance: LOSARTAN POTASSIUM
     Indication: HYPERTENSION
     Dosage: TWO TIMES A DAY
  10. PEPCID [Concomitant]
     Active Substance: FAMOTIDINE
     Indication: NERVOUS SYSTEM DISORDER
  11. PEPCID [Concomitant]
     Active Substance: FAMOTIDINE
     Indication: STRESS
  12. PEPCID [Concomitant]
     Active Substance: FAMOTIDINE
     Indication: OESOPHAGEAL FOOD IMPACTION
  13. METOPROLOL. [Suspect]
     Active Substance: METOPROLOL
     Indication: HEART RATE INCREASED
     Dosage: 1/4 OF TABLET A TWO TIMES A DAY WHEN NECESSARY
     Route: 048
     Dates: start: 20120319

REACTIONS (4)
  - Off label use [Unknown]
  - Myocardial infarction [Recovered/Resolved]
  - Pain [Not Recovered/Not Resolved]
  - Myalgia [Not Recovered/Not Resolved]

NARRATIVE: CASE EVENT DATE: 2010
